FAERS Safety Report 4653574-X (Version None)
Quarter: 2005Q2

REPORT INFORMATION
  Report Type: 
  Country: None (occurrence: None)
  Receive Date: 20050504
  Receipt Date: 20050425
  Transmission Date: 20051028
  Serious: Yes (Other)
  Sender: FDA-Public Use
  Company Number: GXKR2005GB00959

PATIENT
  Age: 47 Year
  Sex: Male

DRUGS (11)
  1. ZYVOX [Suspect]
     Indication: STAPHYLOCOCCAL INFECTION
     Dosage: 600 MG, BID, INTRAVENOUS
     Route: 042
     Dates: start: 20041017, end: 20041020
  2. DOXAZOSIN (NGX) (DOXAZOSIN) [Suspect]
     Dosage: ORAL
     Route: 048
  3. ATENOLOL [Suspect]
     Dosage: ORAL
     Route: 048
  4. RIFAMPICIN [Suspect]
     Dosage: ORAL
     Route: 048
  5. OMEPRAZOLE [Suspect]
  6. PROCYCLINDINE (PROCYCLIDINE) [Suspect]
     Dosage: ORAL
     Route: 048
  7. FENTANYL [Suspect]
     Dosage: INTRAVENOUS
     Route: 042
  8. AMISULPRIDE (AMISULPRIDE) [Suspect]
     Dosage: ORAL
     Route: 048
  9. PANTOPRAZOLE SODIUM [Suspect]
  10. ZOPICLONE (ZOPICLONE) [Suspect]
  11. HALOPERIDOL [Suspect]

REACTIONS (2)
  - DRUG INTERACTION [None]
  - HYPERTENSION [None]
